FAERS Safety Report 15924225 (Version 3)
Quarter: 2019Q3

REPORT INFORMATION
  Report Type: Spontaneous
  Country: US (occurrence: US)
  Receive Date: 20190205
  Receipt Date: 20190911
  Transmission Date: 20191004
  Serious: Yes (Hospitalization, Disabling, Other)
  Sender: FDA-Public Use
  Company Number: US-ACTELION-A-NJ2019-185742

PATIENT
  Age: 49 Year
  Sex: Male

DRUGS (1)
  1. OPSUMIT [Suspect]
     Active Substance: MACITENTAN
     Indication: PULMONARY ARTERIAL HYPERTENSION
     Dosage: 10 MG, QD
     Route: 048
     Dates: start: 20171020

REACTIONS (4)
  - Hospitalisation [Unknown]
  - Transplant [Unknown]
  - Atrial fibrillation [Unknown]
  - Dialysis [Unknown]

NARRATIVE: CASE EVENT DATE: 201908
